FAERS Safety Report 17519291 (Version 1)
Quarter: 2020Q1

REPORT INFORMATION
  Report Type: Spontaneous
  Country: US (occurrence: US)
  Receive Date: 20200310
  Receipt Date: 20200310
  Transmission Date: 20200409
  Serious: No
  Sender: FDA-Public Use
  Company Number: US-ALLERGAN-1919024US

PATIENT
  Sex: Female

DRUGS (1)
  1. ESTRACE [Suspect]
     Active Substance: ESTRADIOL
     Indication: VULVOVAGINAL DRYNESS
     Dosage: 1 GRAM, EVERY NIGHT FOR 2 WEEKS, THEN 2 TIMES
     Route: 067
     Dates: start: 201904, end: 20190502

REACTIONS (4)
  - Vulvovaginal pain [Unknown]
  - Blister [Unknown]
  - Product packaging issue [Unknown]
  - Vulvovaginal erythema [Unknown]

NARRATIVE: CASE EVENT DATE: 201904
